FAERS Safety Report 21650045 (Version 1)
Quarter: 2022Q4

REPORT INFORMATION
  Report Type: Spontaneous
  Country: CH (occurrence: CH)
  Receive Date: 20221128
  Receipt Date: 20221128
  Transmission Date: 20230113
  Serious: Yes (Other)
  Sender: FDA-Public Use
  Company Number: CH-Stemline Therapeutics, Inc.-2022ST000335

PATIENT
  Sex: Male

DRUGS (8)
  1. ELZONRIS [Suspect]
     Active Substance: TAGRAXOFUSP-ERZS
     Indication: Blastic plasmacytoid dendritic cell neoplasia
     Dosage: CYCLE 1
     Route: 042
  2. ELZONRIS [Suspect]
     Active Substance: TAGRAXOFUSP-ERZS
     Dosage: CYCLE 2
     Route: 042
  3. ELZONRIS [Suspect]
     Active Substance: TAGRAXOFUSP-ERZS
     Dosage: CYCLE 3
     Route: 042
  4. ELZONRIS [Suspect]
     Active Substance: TAGRAXOFUSP-ERZS
     Dosage: CYCLE 4
     Route: 042
  5. ELZONRIS [Suspect]
     Active Substance: TAGRAXOFUSP-ERZS
     Dosage: CYCLE 5
     Route: 042
  6. ELZONRIS [Suspect]
     Active Substance: TAGRAXOFUSP-ERZS
     Dosage: CYCLE 6
     Route: 042
  7. ELZONRIS [Suspect]
     Active Substance: TAGRAXOFUSP-ERZS
     Dosage: CYCLE 7
     Route: 042
  8. ELZONRIS [Suspect]
     Active Substance: TAGRAXOFUSP-ERZS
     Dosage: CYCLE 8
     Route: 042

REACTIONS (1)
  - Malignant neoplasm progression [Unknown]
